FAERS Safety Report 5870297-X (Version None)
Quarter: 2008Q3

REPORT INFORMATION
  Report Type: 
  Country: None (occurrence: None)
  Receive Date: 20080904
  Receipt Date: 20070829
  Transmission Date: 20090109
  Serious: No
  Sender: FDA-Public Use
  Company Number: US-BRISTOL-MYERS SQUIBB COMPANY-13890926

PATIENT
  Age: 57 Year
  Sex: Male

DRUGS (7)
  1. DEFINITY [Suspect]
     Indication: ECHOCARDIOGRAM
     Route: 042
     Dates: start: 20070827, end: 20070827
  2. LANTUS [Concomitant]
  3. ASPIRIN [Concomitant]
  4. LISINOPRIL [Concomitant]
  5. ZOCOR [Concomitant]
  6. VYTORIN [Concomitant]
  7. METOPROLOL TARTRATE [Concomitant]

REACTIONS (2)
  - BACK PAIN [None]
  - HYPERHIDROSIS [None]
